FAERS Safety Report 14240010 (Version 1)
Quarter: 2017Q4

REPORT INFORMATION
  Report Type: Spontaneous
  Country: GB (occurrence: GB)
  Receive Date: 20171130
  Receipt Date: 20171130
  Transmission Date: 20180321
  Serious: Yes (Other)
  Sender: FDA-Public Use
  Company Number: GB-ASTRAZENECA-2017SF20461

PATIENT
  Age: 67 Year
  Sex: Male

DRUGS (19)
  1. ROFLUMILAST. [Suspect]
     Active Substance: ROFLUMILAST
     Indication: CHRONIC OBSTRUCTIVE PULMONARY DISEASE
     Route: 048
     Dates: start: 20171006, end: 20171030
  2. ADCAL-D3 [Concomitant]
     Active Substance: CALCIUM CARBONATE\CHOLECALCIFEROL
  3. ACETYLSALICYLIC ACID [Concomitant]
     Active Substance: ASPIRIN
  4. LANSOPRAZOLE. [Concomitant]
     Active Substance: LANSOPRAZOLE
  5. TIOTROPIUM BROMIDE [Concomitant]
     Active Substance: TIOTROPIUM BROMIDE
  6. CARBOCISTEINE [Concomitant]
     Active Substance: CARBOCYSTEINE
  7. ATORVASTATIN [Concomitant]
     Active Substance: ATORVASTATIN
  8. NICORANDIL [Concomitant]
     Active Substance: NICORANDIL
  9. PREDNISOLONE. [Concomitant]
     Active Substance: PREDNISOLONE
  10. TILDIEM LA [Concomitant]
     Active Substance: DILTIAZEM HYDROCHLORIDE
  11. ALENDRONIC ACID [Concomitant]
     Active Substance: ALENDRONIC ACID
  12. QUININE SULFATE. [Concomitant]
     Active Substance: QUININE SULFATE
  13. FOSTAIR [Concomitant]
     Active Substance: BECLOMETHASONE\FORMOTEROL
  14. CODEINE PHOSPHATE [Concomitant]
     Active Substance: CODEINE PHOSPHATE
  15. RAMIPRIL. [Concomitant]
     Active Substance: RAMIPRIL
  16. PARACETAMOL [Concomitant]
     Active Substance: ACETAMINOPHEN
  17. SALBUTAMOL [Concomitant]
     Active Substance: ALBUTEROL
  18. GABAPENTIN. [Concomitant]
     Active Substance: GABAPENTIN
  19. DOXYCYCLINE. [Concomitant]
     Active Substance: DOXYCYCLINE

REACTIONS (4)
  - Malaise [Unknown]
  - Headache [Unknown]
  - Tremor [Recovered/Resolved]
  - Abnormal loss of weight [Unknown]

NARRATIVE: CASE EVENT DATE: 20171006
